FAERS Safety Report 8137369-0 (Version None)
Quarter: 2012Q1

REPORT INFORMATION
  Report Type: 
  Country: None (occurrence: None)
  Receive Date: 20120215
  Receipt Date: 20120206
  Transmission Date: 20120608
  Serious: Yes (Hospitalization, Other)
  Sender: FDA-Public Use
  Company Number: IT-JNJFOC-20120109447

PATIENT
  Age: 47 Year
  Sex: Male

DRUGS (3)
  1. REMICADE [Suspect]
     Route: 042
     Dates: start: 20090501, end: 20100401
  2. REMICADE [Suspect]
     Indication: SPONDYLOARTHROPATHY
     Dosage: 5 MG/KG
     Route: 042
     Dates: start: 20030101, end: 20090401
  3. SYMBICORT [Concomitant]
     Indication: ASTHMA
     Route: 065
     Dates: start: 20100101

REACTIONS (8)
  - BRONCHOPNEUMONIA [None]
  - PARATRACHEAL LYMPHADENOPATHY [None]
  - PERICARDITIS [None]
  - NODULE [None]
  - HYPERPYREXIA [None]
  - PERICARDIAL EFFUSION [None]
  - ATELECTASIS [None]
  - PLEURAL EFFUSION [None]
